FAERS Safety Report 7609935-X (Version None)
Quarter: 2011Q3

REPORT INFORMATION
  Report Type: 
  Country: None (occurrence: None)
  Receive Date: 20110714
  Receipt Date: 20110509
  Transmission Date: 20111222
  Serious: Yes (Death)
  Sender: FDA-Public Use
  Company Number: US-TYCO HEALTHCARE/MALLINCKRODT-T201100929

PATIENT
  Age: 26 Year
  Sex: Male

DRUGS (3)
  1. XANAX [Suspect]
     Dosage: UNK
  2. OXYCODONE HCL [Suspect]
     Dosage: UNK
  3. COCAINE [Suspect]
     Dosage: UNK

REACTIONS (1)
  - TOXICITY TO VARIOUS AGENTS [None]
